FAERS Safety Report 5442554-2 (Version None)
Quarter: 2007Q3

REPORT INFORMATION
  Report Type: 
  Country: None (occurrence: None)
  Receive Date: 20070904
  Receipt Date: 20070823
  Transmission Date: 20080115
  Serious: Yes (Other)
  Sender: FDA-Public Use
  Company Number: PHEH2006US08521

PATIENT
  Age: 44 Year
  Sex: Male

DRUGS (3)
  1. SANDOSTATIN LAR [Suspect]
     Indication: ACROMEGALY
     Dosage: 20 MG, QMO
     Route: 030
     Dates: start: 20060527
  2. SIROLIMUS [Concomitant]
  3. TACROLIMUS [Concomitant]

REACTIONS (7)
  - ABDOMINAL PAIN UPPER [None]
  - ASPERGILLOSIS [None]
  - DIARRHOEA [None]
  - NAUSEA [None]
  - PYREXIA [None]
  - SUPERINFECTION [None]
  - VOMITING [None]
